FAERS Safety Report 15690269 (Version 1)
Quarter: 2018Q4

REPORT INFORMATION
  Report Type: Spontaneous
  Country: US (occurrence: US)
  Receive Date: 20181205
  Receipt Date: 20181205
  Transmission Date: 20190205
  Serious: Yes (Hospitalization)
  Sender: FDA-Public Use
  Company Number: None

PATIENT
  Sex: Female

DRUGS (18)
  1. CLOPIDOGREL [Concomitant]
     Active Substance: CLOPIDOGREL BISULFATE
  2. LEVEMIR [Concomitant]
     Active Substance: INSULIN DETEMIR
  3. SYNTHROID [Concomitant]
     Active Substance: LEVOTHYROXINE SODIUM
  4. METOPROLOL. [Concomitant]
     Active Substance: METOPROLOL
  5. BRILINTA [Concomitant]
     Active Substance: TICAGRELOR
  6. REPATHA [Suspect]
     Active Substance: EVOLOCUMAB
     Indication: HYPERCHOLESTEROLAEMIA
     Dosage: ?          OTHER FREQUENCY:MONTHLY;?
     Route: 058
  7. LOSARTAN. [Concomitant]
     Active Substance: LOSARTAN
  8. NITROGLYCERIN. [Concomitant]
     Active Substance: NITROGLYCERIN
  9. CYANOCOBALAM [Concomitant]
     Active Substance: CYANOCOBALAMIN
  10. TIZANIDINE. [Concomitant]
     Active Substance: TIZANIDINE
  11. NIFEDIPINE. [Concomitant]
     Active Substance: NIFEDIPINE
  12. TORSEMIDE. [Concomitant]
     Active Substance: TORSEMIDE
  13. DEXILANT [Concomitant]
     Active Substance: DEXLANSOPRAZOLE
  14. TRESIBA [Concomitant]
     Active Substance: INSULIN DEGLUDEC
  15. ESCITALOPRAM [Concomitant]
     Active Substance: ESCITALOPRAM OXALATE
  16. NOVOLOG [Concomitant]
     Active Substance: INSULIN ASPART
  17. ATORVASTATIN [Concomitant]
     Active Substance: ATORVASTATIN
  18. ISOSORBIDE MONONITRATE. [Concomitant]
     Active Substance: ISOSORBIDE MONONITRATE

REACTIONS (1)
  - Cardiac failure congestive [None]
